FAERS Safety Report 14271990 (Version 1)
Quarter: 2017Q4

REPORT INFORMATION
  Report Type: Spontaneous
  Country: DE (occurrence: DE)
  Receive Date: 20171211
  Receipt Date: 20171211
  Transmission Date: 20180321
  Serious: Yes (Other)
  Sender: FDA-Public Use
  Company Number: DE-OTSUKA-J20105395

PATIENT
  Age: 31 Year
  Sex: Female
  Weight: 61 kg

DRUGS (4)
  1. CLOZAPINE. [Suspect]
     Active Substance: CLOZAPINE
     Indication: BIPOLAR DISORDER
     Dosage: 125 MG, QD
     Route: 065
     Dates: start: 2005
  2. ABILIFY [Suspect]
     Active Substance: ARIPIPRAZOLE
     Indication: BIPOLAR DISORDER
     Dosage: 5 MG, QD
     Route: 065
     Dates: start: 2009, end: 20100706
  3. LITHIUM. [Suspect]
     Active Substance: LITHIUM
     Indication: PRODUCT USED FOR UNKNOWN INDICATION
     Dosage: 650 MG, QD
     Route: 065
     Dates: start: 2005
  4. LITHIUM. [Suspect]
     Active Substance: LITHIUM
     Indication: PRODUCT USED FOR UNKNOWN INDICATION
     Dosage: 650 MG, QD
     Route: 065
     Dates: start: 2005

REACTIONS (4)
  - Depression [Unknown]
  - Maternal exposure during pregnancy [Recovered/Resolved]
  - Caesarean section [Unknown]
  - Normal newborn [Unknown]

NARRATIVE: CASE EVENT DATE: 20110309
